FAERS Safety Report 11825295 (Version 1)
Quarter: 2015Q4

REPORT INFORMATION
  Report Type: Spontaneous
  Country: FR (occurrence: FR)
  Receive Date: 20151211
  Receipt Date: 20151211
  Transmission Date: 20160305
  Serious: Yes (Hospitalization, Disabling, Congenital Anomaly, Other)
  Sender: FDA-Public Use
  Company Number: FR-BRISTOL-MYERS SQUIBB COMPANY-11024213

PATIENT
  Age: 0 Day
  Sex: Male

DRUGS (5)
  1. RETROVIR [Suspect]
     Active Substance: ZIDOVUDINE
     Dosage: UNK
     Route: 064
     Dates: start: 20010128, end: 20010128
  2. RETROVIR [Suspect]
     Active Substance: ZIDOVUDINE
     Indication: PROPHYLAXIS
     Dosage: 8 MG, Q6H
     Route: 048
     Dates: start: 20010128, end: 20010311
  3. ZERIT [Suspect]
     Active Substance: STAVUDINE
     Indication: PRODUCT USED FOR UNKNOWN INDICATION
     Dosage: UNK
     Route: 064
  4. VIDEX [Suspect]
     Active Substance: DIDANOSINE
     Indication: PRODUCT USED FOR UNKNOWN INDICATION
     Dosage: UNK
     Route: 064
  5. RETROVIR [Suspect]
     Active Substance: ZIDOVUDINE
     Indication: PRODUCT USED FOR UNKNOWN INDICATION
     Dosage: UNK
     Route: 064
     Dates: start: 20001128, end: 20010128

REACTIONS (13)
  - Ventricular septal defect [Not Recovered/Not Resolved]
  - Hypotonia [Not Recovered/Not Resolved]
  - Hypertonia [Not Recovered/Not Resolved]
  - Heart disease congenital [Not Recovered/Not Resolved]
  - Vision abnormal neonatal [Not Recovered/Not Resolved]
  - Cardiomyopathy [Not Recovered/Not Resolved]
  - Psychomotor skills impaired [Not Recovered/Not Resolved]
  - Hearing impaired [Not Recovered/Not Resolved]
  - Blood lactic acid increased [Not Recovered/Not Resolved]
  - Foetal exposure during pregnancy [Unknown]
  - Coarctation of the aorta [Not Recovered/Not Resolved]
  - Blood pyruvic acid decreased [Not Recovered/Not Resolved]
  - Atrial septal defect [Not Recovered/Not Resolved]

NARRATIVE: CASE EVENT DATE: 20010128
